FAERS Safety Report 6838437-3 (Version None)
Quarter: 2010Q3

REPORT INFORMATION
  Report Type: 
  Country: None (occurrence: None)
  Receive Date: 20100713
  Receipt Date: 20070612
  Transmission Date: 20110219
  Serious: No
  Sender: FDA-Public Use
  Company Number: US-PFIZER INC-2007049207

PATIENT
  Sex: Male
  Weight: 104.5 kg

DRUGS (5)
  1. CHANTIX [Suspect]
     Indication: SMOKING CESSATION THERAPY
     Dates: start: 20070531
  2. CARDIOVASCULAR SYSTEM DRUGS [Concomitant]
  3. ALL OTHER THERAPEUTIC PRODUCTS [Concomitant]
  4. HYDROCODONE BITARTRATE [Concomitant]
  5. DRUG, UNSPECIFIED [Concomitant]

REACTIONS (6)
  - BALANCE DISORDER [None]
  - FEELING ABNORMAL [None]
  - HEADACHE [None]
  - NAUSEA [None]
  - SUNBURN [None]
  - TINNITUS [None]
